FAERS Safety Report 10672951 (Version 2)
Quarter: 2014Q4

REPORT INFORMATION
  Report Type: Spontaneous
  Country: US (occurrence: US)
  Receive Date: 20141223
  Receipt Date: 20141223
  Transmission Date: 20150529
  Serious: Yes (Hospitalization)
  Sender: FDA-Public Use
  Company Number: US-ACTELION-A-NJ2014-107002

PATIENT
  Age: 47 Year
  Sex: Female

DRUGS (4)
  1. VELETRI [Suspect]
     Active Substance: EPOPROSTENOL
     Indication: PULMONARY ARTERIAL HYPERTENSION
     Dosage: 4 NG/KG, PER MIN
     Route: 042
     Dates: start: 20141015
  2. VELETRI [Suspect]
     Active Substance: EPOPROSTENOL
     Dosage: 3 NG/KG, UNK
     Route: 042
  3. REVATIO [Concomitant]
     Active Substance: SILDENAFIL CITRATE
  4. ASPIRIN. [Concomitant]
     Active Substance: ASPIRIN

REACTIONS (13)
  - Malaise [Unknown]
  - Muscular weakness [Unknown]
  - Hemiparesis [Unknown]
  - Gait disturbance [Unknown]
  - Pain in jaw [Unknown]
  - Hypoaesthesia [Unknown]
  - Headache [Unknown]
  - Insomnia [Unknown]
  - Nausea [Unknown]
  - Decreased appetite [Unknown]
  - Malaise [Unknown]
  - Back pain [Unknown]
  - Diarrhoea [Unknown]

NARRATIVE: CASE EVENT DATE: 201410
